FAERS Safety Report 7784824-9 (Version None)
Quarter: 2011Q3

REPORT INFORMATION
  Report Type: 
  Country: None (occurrence: None)
  Receive Date: 20110928
  Receipt Date: 20110919
  Transmission Date: 20111222
  Serious: Yes (Other)
  Sender: FDA-Public Use
  Company Number: US-ASTRAZENECA-2011SE56469

PATIENT
  Age: 78 Year
  Sex: Female

DRUGS (2)
  1. TOPROL-XL [Suspect]
     Dosage: METOPROLOL
     Route: 048
  2. TOPROL-XL [Suspect]
     Route: 048

REACTIONS (2)
  - DRUG EFFECT DECREASED [None]
  - TRANSIENT ISCHAEMIC ATTACK [None]
